FAERS Safety Report 4847237-5 (Version None)
Quarter: 2005Q4

REPORT INFORMATION
  Report Type: 
  Country: None (occurrence: None)
  Receive Date: 20051207
  Receipt Date: 20050906
  Transmission Date: 20060501
  Serious: Yes (Hospitalization)
  Sender: FDA-Public Use
  Company Number: FR-LMS-050064

PATIENT
  Age: 73 Year
  Sex: Male

DRUGS (3)
  1. NABUCOX [Suspect]
     Indication: DRUG USE FOR UNKNOWN INDICATION
     Dosage: 1G PER DAY
     Route: 048
     Dates: start: 20050528, end: 20050531
  2. NEURIPLEGE [Suspect]
     Route: 058
     Dates: start: 20050528, end: 20050529
  3. PANOS [Suspect]
     Dosage: 50MG PER DAY
     Route: 048
     Dates: start: 20050528, end: 20050531

REACTIONS (3)
  - ERYTHEMA MULTIFORME [None]
  - SKIN DISORDER [None]
  - SKIN LESION [None]
